FAERS Safety Report 8368375-9 (Version None)
Quarter: 2012Q2

REPORT INFORMATION
  Report Type: 
  Country: None (occurrence: None)
  Receive Date: 20120517
  Receipt Date: 20120508
  Transmission Date: 20120825
  Serious: Yes (Other)
  Sender: FDA-Public Use
  Company Number: IL-ELI_LILLY_AND_COMPANY-IL201205005085

PATIENT
  Sex: Female
  Weight: 78 kg

DRUGS (4)
  1. IKAPRESS [Concomitant]
     Indication: RESPIRATORY THERAPY
     Dosage: 120 MG, UNKNOWN
     Route: 065
  2. CALCIUM [Concomitant]
     Dosage: UNK, UNKNOWN
     Route: 065
  3. FORTEO [Suspect]
     Indication: OSTEOPOROSIS
     Dosage: 20 UG, QD
     Route: 058
     Dates: start: 20120424
  4. VITAMIN D [Concomitant]
     Dosage: UNK, UNKNOWN
     Route: 065

REACTIONS (3)
  - ARRHYTHMIA [None]
  - GENERAL PHYSICAL HEALTH DETERIORATION [None]
  - CONVULSION [None]
